FAERS Safety Report 24983841 (Version 1)
Quarter: 2025Q1

REPORT INFORMATION
  Report Type: Spontaneous
  Country: JO (occurrence: JO)
  Receive Date: 20250219
  Receipt Date: 20250219
  Transmission Date: 20250409
  Serious: Yes (Other)
  Sender: CASPER PHARMA
  Company Number: JO-CASPERPHARMA-JO-2025RISLIT00086

PATIENT
  Age: 53 Year
  Sex: Female

DRUGS (8)
  1. FENOFIBRATE [Suspect]
     Active Substance: FENOFIBRATE
     Indication: Dyslipidaemia
     Route: 065
  2. METFORMIN [Concomitant]
     Active Substance: METFORMIN HYDROCHLORIDE
     Indication: Product used for unknown indication
     Route: 065
  3. SAXAGLIPTIN [Concomitant]
     Active Substance: SAXAGLIPTIN
     Indication: Product used for unknown indication
     Route: 065
  4. ATORVASTATIN [Concomitant]
     Active Substance: ATORVASTATIN
     Route: 065
  5. CYANOCOBALAMIN [Concomitant]
     Active Substance: CYANOCOBALAMIN
     Indication: Product used for unknown indication
     Route: 065
  6. VITAMIN D NOS [Concomitant]
     Active Substance: CHOLECALCIFEROL\ERGOCALCIFEROL
     Indication: Product used for unknown indication
     Route: 065
  7. LANSOPRAZOLE [Concomitant]
     Active Substance: LANSOPRAZOLE
     Indication: Product used for unknown indication
     Route: 065
  8. ASPIRIN [Concomitant]
     Active Substance: ASPIRIN
     Indication: Product used for unknown indication
     Route: 065

REACTIONS (5)
  - Subacute cutaneous lupus erythematosus [Recovered/Resolved]
  - Rash [Recovered/Resolved]
  - Photosensitivity reaction [Recovered/Resolved]
  - Dermatitis [Recovered/Resolved]
  - Rash erythematous [Recovered/Resolved]
